FAERS Safety Report 6491161-1 (Version None)
Quarter: 2009Q4

REPORT INFORMATION
  Report Type: 
  Country: None (occurrence: None)
  Receive Date: 20091211
  Receipt Date: 20091202
  Transmission Date: 20100525
  Serious: Yes (Other)
  Sender: FDA-Public Use
  Company Number: US-ABBOTT-09P-163-0612452-00

PATIENT
  Sex: Female
  Weight: 20.884 kg

DRUGS (3)
  1. DEPAKOTE ER [Suspect]
     Indication: BIPOLAR DISORDER
     Dates: start: 20080101, end: 20091001
  2. RISPERDAL [Concomitant]
     Indication: BIPOLAR DISORDER
  3. VYVANSE [Concomitant]
     Indication: BIPOLAR DISORDER

REACTIONS (5)
  - CEREBRAL ATROPHY [None]
  - COMPLEX PARTIAL SEIZURES [None]
  - FATIGUE [None]
  - THROMBOCYTOPENIA [None]
  - VIRAL INFECTION [None]
